FAERS Safety Report 17926283 (Version 1)
Quarter: 2020Q2

REPORT INFORMATION
  Report Type: Spontaneous
  Country: US (occurrence: US)
  Receive Date: 20200623
  Receipt Date: 20200623
  Transmission Date: 20200714
  Serious: Yes (Death, Other)
  Sender: FDA-Public Use
  Company Number: US-INCYTE CORPORATION-2020IN005834

PATIENT

DRUGS (5)
  1. JAKAFI [Suspect]
     Active Substance: RUXOLITINIB
     Indication: MYELODYSPLASTIC SYNDROME
  2. JAKAFI [Suspect]
     Active Substance: RUXOLITINIB
     Indication: SQUAMOUS CELL CARCINOMA OF SKIN
  3. JAKAFI [Suspect]
     Active Substance: RUXOLITINIB
     Indication: MYELOPROLIFERATIVE NEOPLASM
  4. JAKAFI [Suspect]
     Active Substance: RUXOLITINIB
     Indication: BASAL CELL CARCINOMA
  5. JAKAFI [Suspect]
     Active Substance: RUXOLITINIB
     Indication: SKIN CANCER
     Dosage: 5 MILLIGRAM, BID
     Route: 048
     Dates: start: 201703, end: 20200530

REACTIONS (2)
  - Death [Fatal]
  - Off label use [Unknown]

NARRATIVE: CASE EVENT DATE: 201703
